FAERS Safety Report 4637969-6 (Version None)
Quarter: 2005Q3

REPORT INFORMATION
  Report Type: 
  Country: None (occurrence: None)
  Receive Date: 20050418
  Receipt Date: 20050215
  Transmission Date: 20060218
  Serious: Yes (Hospitalization)
  Sender: FDA-Public Use
  Company Number: PHHO2005JP02774

PATIENT
  Age: 54 Year
  Sex: Male
  Weight: 71 kg

DRUGS (4)
  1. DIOVAN [Suspect]
     Indication: ESSENTIAL HYPERTENSION
     Route: 048
     Dates: start: 20050116, end: 20050204
  2. NORVASC [Suspect]
     Indication: ESSENTIAL HYPERTENSION
     Route: 048
     Dates: start: 20041222, end: 20050204
  3. RINDERON-VG [Concomitant]
     Indication: DERMATITIS ATOPIC
     Dates: start: 20041101
  4. RESTAMIN [Concomitant]
     Indication: DERMATITIS ATOPIC
     Dosage: UNK, UNK
     Dates: start: 20041101

REACTIONS (7)
  - CEREBRAL INFARCTION [None]
  - CEREBROVASCULAR ACCIDENT [None]
  - HAEMODYNAMIC INSTABILITY [None]
  - HEMIANOPIA [None]
  - HYPOAESTHESIA [None]
  - VISION BLURRED [None]
  - VITREOUS DETACHMENT [None]
